FAERS Safety Report 25973684 (Version 1)
Quarter: 2025Q4

REPORT INFORMATION
  Report Type: Spontaneous
  Country: US (occurrence: US)
  Receive Date: 20251029
  Receipt Date: 20251029
  Transmission Date: 20260117
  Serious: No
  Sender: AMNEAL
  Company Number: US-AMNEAL PHARMACEUTICALS-2024-AMRX-03788

PATIENT
  Sex: Female
  Weight: 65.77 kg

DRUGS (2)
  1. PROGESTERONE [Suspect]
     Active Substance: PROGESTERONE
     Indication: Hormone replacement therapy
     Dosage: LOWER DOSE
     Route: 065
  2. PROGESTERONE [Suspect]
     Active Substance: PROGESTERONE
     Dosage: HIGHER DOSE

REACTIONS (1)
  - Heavy menstrual bleeding [Unknown]
